FAERS Safety Report 16635243 (Version 1)
Quarter: 2019Q3

REPORT INFORMATION
  Report Type: Spontaneous
  Country: US (occurrence: US)
  Receive Date: 20190726
  Receipt Date: 20190726
  Transmission Date: 20191004
  Serious: Yes (Hospitalization, Other)
  Sender: FDA-Public Use
  Company Number: US-AMGEN-USASP2019116306

PATIENT
  Age: 61 Year
  Sex: Male

DRUGS (6)
  1. ATIVAN [Concomitant]
     Active Substance: LORAZEPAM
     Dosage: 0.5 TO 1 MG (AS NEEDED AT BED TIME)
  2. CELECOXIB. [Concomitant]
     Active Substance: CELECOXIB
     Dosage: 100 MILLIGRAM, AS NECESSARY
  3. AMLODIPINE [Concomitant]
     Active Substance: AMLODIPINE BESYLATE
     Dosage: 10 MILLIGRAM, QD
  4. ENBREL [Suspect]
     Active Substance: ETANERCEPT
     Indication: PSORIATIC ARTHROPATHY
     Dosage: 50 MILLIGRAM, QWK
     Route: 065
     Dates: start: 2017
  5. SIMVASTATIN. [Concomitant]
     Active Substance: SIMVASTATIN
     Dosage: 10 MILLIGRAM, QD (AT BED TIME)
  6. LOSARTAN. [Concomitant]
     Active Substance: LOSARTAN
     Dosage: 50 MILLIGRAM, QD

REACTIONS (3)
  - Stress [Unknown]
  - Pericarditis [Unknown]
  - Influenza like illness [Not Recovered/Not Resolved]

NARRATIVE: CASE EVENT DATE: 2019
